FAERS Safety Report 21582764 (Version 3)
Quarter: 2022Q4

REPORT INFORMATION
  Report Type: Spontaneous
  Country: CL (occurrence: CL)
  Receive Date: 20221111
  Receipt Date: 20221216
  Transmission Date: 20230113
  Serious: No
  Sender: FDA-Public Use
  Company Number: CL-PFIZER INC-PV202200098358

PATIENT
  Age: 14 Year
  Sex: Male
  Weight: 39 kg

DRUGS (1)
  1. GENOTROPIN [Suspect]
     Active Substance: SOMATROPIN
     Indication: Growth disorder
     Dosage: 1.7 MG, DAILY
     Dates: start: 20211001

REACTIONS (4)
  - Drug ineffective [Unknown]
  - Poor quality device used [Unknown]
  - Needle issue [Unknown]
  - Device issue [Unknown]

NARRATIVE: CASE EVENT DATE: 20221102
